FAERS Safety Report 24903851 (Version 1)
Quarter: 2025Q1

REPORT INFORMATION
  Report Type: Spontaneous
  Country: US (occurrence: US)
  Receive Date: 20250130
  Receipt Date: 20250130
  Transmission Date: 20250409
  Serious: No
  Sender: Haleon PLC
  Company Number: US-HALEON-2225319

PATIENT
  Sex: Male

DRUGS (9)
  1. DEXTROMETHORPHAN HYDROBROMIDE\DOXYLAMINE SUCCINATE [Suspect]
     Active Substance: DEXTROMETHORPHAN HYDROBROMIDE\DOXYLAMINE SUCCINATE
     Indication: Cough
     Dates: start: 20250125
  2. CHILDRENS BENADRYL ALLERGY [Suspect]
     Active Substance: DIPHENHYDRAMINE HYDROCHLORIDE
     Indication: Product used for unknown indication
     Dates: start: 20250125
  3. PEPCID [Suspect]
     Active Substance: FAMOTIDINE
     Indication: Hypersensitivity
     Dates: start: 20250125
  4. PEPCID [Suspect]
     Active Substance: FAMOTIDINE
     Indication: Dyspnoea
  5. PEPCID [Suspect]
     Active Substance: FAMOTIDINE
     Indication: Urticaria
  6. PEPCID [Suspect]
     Active Substance: FAMOTIDINE
     Indication: Throat irritation
  7. PEPCID [Suspect]
     Active Substance: FAMOTIDINE
     Indication: Abdominal discomfort
  8. PEPCID [Suspect]
     Active Substance: FAMOTIDINE
     Indication: Swelling face
  9. PEPCID [Suspect]
     Active Substance: FAMOTIDINE
     Indication: Nausea

REACTIONS (10)
  - Hypersensitivity [Unknown]
  - Throat irritation [Unknown]
  - Dyspnoea [Unknown]
  - Swelling face [Unknown]
  - Urticaria [Unknown]
  - Abdominal discomfort [Unknown]
  - Nausea [Unknown]
  - Vomiting [Unknown]
  - Abdominal pain upper [Unknown]
  - Incorrect dose administered [Unknown]

NARRATIVE: CASE EVENT DATE: 20250125
